FAERS Safety Report 24262028 (Version 1)
Quarter: 2024Q3

REPORT INFORMATION
  Report Type: Spontaneous
  Country: RU (occurrence: RU)
  Receive Date: 20240829
  Receipt Date: 20240829
  Transmission Date: 20241017
  Serious: Yes (Other)
  Sender: NOVARTIS
  Company Number: RU-002147023-NVSC2024RU173225

PATIENT
  Age: 12 Year
  Sex: Male
  Weight: 57 kg

DRUGS (3)
  1. TRILEPTAL [Suspect]
     Active Substance: OXCARBAZEPINE
     Indication: Neurodegenerative disorder
     Dosage: 600 MG, BID
     Route: 048
     Dates: start: 202101, end: 202402
  2. RISPERIDONE [Concomitant]
     Active Substance: RISPERIDONE
     Indication: Personality disorder
     Dosage: 0.5 ML, BID
     Route: 048
     Dates: start: 2020
  3. LEVOCARNITINE [Concomitant]
     Active Substance: LEVOCARNITINE
     Indication: Product used for unknown indication
     Dosage: 2 ML, TID
     Route: 048
     Dates: start: 2021

REACTIONS (3)
  - Metabolic acidosis [Recovered/Resolved]
  - Taste disorder [Recovered/Resolved]
  - Nausea [Recovered/Resolved]

NARRATIVE: CASE EVENT DATE: 20210101
